FAERS Safety Report 17761088 (Version 2)
Quarter: 2020Q2

REPORT INFORMATION
  Report Type: Spontaneous
  Country: AT (occurrence: AT)
  Receive Date: 20200508
  Receipt Date: 20200602
  Transmission Date: 20200714
  Serious: Yes (Hospitalization, Other)
  Sender: FDA-Public Use
  Company Number: AT-PFIZER INC-2020182465

PATIENT
  Age: 21 Year
  Sex: Female
  Weight: 50 kg

DRUGS (4)
  1. COSENTYX [Suspect]
     Active Substance: SECUKINUMAB
     Dosage: 1 DF, MONTHLY
     Route: 065
     Dates: start: 20170405, end: 20170703
  2. DALACIN [Suspect]
     Active Substance: CLINDAMYCIN
     Indication: STAPHYLOCOCCAL INFECTION
     Dosage: UNK
     Route: 065
  3. COSENTYX [Suspect]
     Active Substance: SECUKINUMAB
     Indication: PSORIASIS
     Dosage: UNK
     Route: 065
     Dates: start: 20160824
  4. COSENTYX [Suspect]
     Active Substance: SECUKINUMAB
     Dosage: 1 DF, MONTHLY
     Route: 065
     Dates: start: 20170405, end: 20170703

REACTIONS (12)
  - Abdominal pain [Recovering/Resolving]
  - Type I hypersensitivity [Unknown]
  - Staphylococcal infection [Recovering/Resolving]
  - Colitis ulcerative [Unknown]
  - Diarrhoea haemorrhagic [Recovering/Resolving]
  - Conjunctivitis allergic [Unknown]
  - Erythema nodosum [Unknown]
  - Drug eruption [Unknown]
  - Papule [Unknown]
  - Skin oedema [Unknown]
  - Rhinitis [Unknown]
  - Flushing [Unknown]

NARRATIVE: CASE EVENT DATE: 201705
